FAERS Safety Report 18762316 (Version 1)
Quarter: 2021Q1

REPORT INFORMATION
  Report Type: Spontaneous
  Country: US (occurrence: US)
  Receive Date: 20210119
  Receipt Date: 20210119
  Transmission Date: 20210419
  Serious: Yes (Hospitalization)
  Sender: FDA-Public Use
  Company Number: None

PATIENT
  Age: 34 Year
  Sex: Male

DRUGS (5)
  1. BUSPIRONE [Concomitant]
     Active Substance: BUSPIRONE HYDROCHLORIDE
  2. METROMIDAZOL [Concomitant]
  3. OXYCARBAZEPIN [Concomitant]
  4. CIPROFLOXACN [Concomitant]
     Active Substance: CIPROFLOXACIN
  5. HUMIRA [Suspect]
     Active Substance: ADALIMUMAB
     Indication: CROHN^S DISEASE
     Route: 058

REACTIONS (2)
  - Crohn^s disease [None]
  - Therapy interrupted [None]

NARRATIVE: CASE EVENT DATE: 20210104
